FAERS Safety Report 6233759-1 (Version None)
Quarter: 2009Q2

REPORT INFORMATION
  Report Type: 
  Country: None (occurrence: None)
  Receive Date: 20090616
  Receipt Date: 20090616
  Transmission Date: 20091009
  Serious: No
  Sender: FDA-Public Use
  Company Number: None

PATIENT
  Age: 2 Year
  Sex: Female
  Weight: 12.2471 kg

DRUGS (1)
  1. KEPPRA [Suspect]
     Indication: CONVULSION
     Dosage: 4ML AM / 3 ML PM B.I.D. PO
     Route: 048
     Dates: start: 20090219, end: 20090615

REACTIONS (3)
  - BALANCE DISORDER [None]
  - HYPERTONIA [None]
  - PAIN [None]
